FAERS Safety Report 16805017 (Version 2)
Quarter: 2019Q3

REPORT INFORMATION
  Report Type: Spontaneous
  Country: US (occurrence: US)
  Receive Date: 20190913
  Receipt Date: 20190917
  Transmission Date: 20191005
  Serious: No
  Sender: FDA-Public Use
  Company Number: US-PFIZER INC-2019395309

PATIENT
  Age: 75 Year
  Sex: Male

DRUGS (1)
  1. XALKORI [Suspect]
     Active Substance: CRIZOTINIB
     Indication: LUNG NEOPLASM MALIGNANT
     Dosage: 250 MG, UNK

REACTIONS (6)
  - Neoplasm progression [Unknown]
  - Confusional state [Unknown]
  - Abdominal pain upper [Unknown]
  - Pain [Not Recovered/Not Resolved]
  - General physical health deterioration [Unknown]
  - Decreased appetite [Unknown]
